FAERS Safety Report 13169873 (Version 2)
Quarter: 2018Q1

REPORT INFORMATION
  Report Type: Spontaneous
  Country: US (occurrence: US)
  Receive Date: 20170131
  Receipt Date: 20180126
  Transmission Date: 20180508
  Serious: No
  Sender: FDA-Public Use
  Company Number: US-ABBVIE-16K-163-1619921-00

PATIENT

DRUGS (1)
  1. HUMIRA [Suspect]
     Active Substance: ADALIMUMAB
     Indication: PSORIASIS
     Route: 058

REACTIONS (17)
  - Irritability [Unknown]
  - Impaired self-care [Recovering/Resolving]
  - Feeling hot [Unknown]
  - Skin hypertrophy [Unknown]
  - Feeling of despair [Unknown]
  - Skin exfoliation [Unknown]
  - Mood altered [Unknown]
  - Skin burning sensation [Unknown]
  - Frustration tolerance decreased [Unknown]
  - Fatigue [Unknown]
  - Loss of personal independence in daily activities [Recovering/Resolving]
  - Stress [Unknown]
  - Seasonal allergy [Unknown]
  - Pain [Unknown]
  - Skin swelling [Unknown]
  - Psoriasis [Recovering/Resolving]
  - Dandruff [Unknown]
